FAERS Safety Report 8820130 (Version 2)
Quarter: 2012Q4

REPORT INFORMATION
  Report Type: 
  Country: US (occurrence: US)
  Receive Date: 20121001
  Receipt Date: 20121116
  Transmission Date: 20130627
  Serious: Yes (Other)
  Sender: FDA-Public Use
  Company Number: US-ROCHE-715918

PATIENT

DRUGS (2)
  1. MYCOPHENOLATE MOFETIL [Suspect]
     Indication: HEART AND LUNG TRANSPLANT
     Route: 065
  2. TACROLIMUS [Suspect]
     Indication: HEART AND LUNG TRANSPLANT
     Route: 065

REACTIONS (3)
  - Cytomegalovirus infection [Unknown]
  - Angiopathy [Unknown]
  - Transplant rejection [Unknown]
